FAERS Safety Report 7529367-2 (Version None)
Quarter: 2011Q2

REPORT INFORMATION
  Report Type: 
  Country: None (occurrence: None)
  Receive Date: 20110607
  Receipt Date: 20110601
  Transmission Date: 20111010
  Serious: Yes (Other)
  Sender: FDA-Public Use
  Company Number: US-ROCHE-780701

PATIENT
  Sex: Female

DRUGS (1)
  1. BONIVA [Suspect]
     Dosage: STRENGTH: 150
     Route: 065

REACTIONS (3)
  - APPENDICITIS PERFORATED [None]
  - GASTROOESOPHAGEAL REFLUX DISEASE [None]
  - GANGRENE [None]
